FAERS Safety Report 22156988 (Version 1)
Quarter: 2023Q1

REPORT INFORMATION
  Report Type: Spontaneous
  Country: US (occurrence: None)
  Receive Date: 20230330
  Receipt Date: 20230330
  Transmission Date: 20230417
  Serious: Yes (Hospitalization)
  Sender: FDA-Public Use
  Company Number: None

PATIENT
  Age: 64 Year
  Sex: Female
  Weight: 114.75 kg

DRUGS (2)
  1. GLASSIA [Suspect]
     Active Substance: .ALPHA.1-PROTEINASE INHIBITOR HUMAN
     Indication: Alpha-1 antitrypsin deficiency
     Dosage: FREQUENCY : WEEKLY;?
     Route: 042
     Dates: start: 20230224, end: 20230324
  2. SODIUM CHLORIDE [Concomitant]
     Active Substance: SODIUM CHLORIDE

REACTIONS (8)
  - Tunnel vision [None]
  - Feeling abnormal [None]
  - Lethargy [None]
  - Dizziness [None]
  - Fluid retention [None]
  - Heart rate irregular [None]
  - Skin discolouration [None]
  - Infusion related reaction [None]

NARRATIVE: CASE EVENT DATE: 20230324
